FAERS Safety Report 4429507-8 (Version None)
Quarter: 2004Q3

REPORT INFORMATION
  Report Type: 
  Country: None (occurrence: None)
  Receive Date: 20040819
  Receipt Date: 20040726
  Transmission Date: 20050211
  Serious: Yes (Hospitalization)
  Sender: FDA-Public Use
  Company Number: KR-ROCHE-375132

PATIENT
  Age: 26 Year
  Sex: Female

DRUGS (2)
  1. ROACCUTANE [Suspect]
     Indication: ACNE
     Route: 048
     Dates: start: 20031015, end: 20031215
  2. ROACCUTANE [Suspect]
     Route: 048
     Dates: start: 20040615

REACTIONS (1)
  - INFLAMMATION [None]
